FAERS Safety Report 16228043 (Version 1)
Quarter: 2019Q2

REPORT INFORMATION
  Report Type: Spontaneous
  Country: US (occurrence: US)
  Receive Date: 20190423
  Receipt Date: 20190423
  Transmission Date: 20190711
  Serious: Yes (Other)
  Sender: FDA-Public Use
  Company Number: US-BAYER-2019-082318

PATIENT
  Age: 91 Year
  Sex: Female

DRUGS (1)
  1. A AND D ORIGINAL [Suspect]
     Active Substance: LANOLIN\PETROLATUM
     Dosage: UNK
     Route: 065

REACTIONS (1)
  - Haematochezia [Unknown]
